FAERS Safety Report 4417333-5 (Version None)
Quarter: 2004Q2

REPORT INFORMATION
  Report Type: 
  Country: None (occurrence: None)
  Receive Date: 20040629
  Receipt Date: 20040121
  Transmission Date: 20050107
  Serious: Yes (Hospitalization, Other)
  Sender: FDA-Public Use
  Company Number: US_010668020

PATIENT
  Age: 62 Year
  Sex: Female
  Weight: 80 kg

DRUGS (4)
  1. HUMULIN 70/30 [Suspect]
     Indication: DIABETES MELLITUS
     Dosage: 84 U DAY
     Dates: end: 20010613
  2. HUMULIN R [Suspect]
     Indication: DIABETES MELLITUS
     Dates: start: 19940101
  3. HUMALOG [Suspect]
     Indication: DIABETES MELLITUS
     Dosage: 84 U/DAY
     Dates: start: 20010613
  4. GLUCOPHAGE [Concomitant]

REACTIONS (7)
  - BLOOD GLUCOSE INCREASED [None]
  - BREAST CANCER [None]
  - BREAST MASS [None]
  - CATARACT [None]
  - HYPOACUSIS [None]
  - INJECTION SITE PAIN [None]
  - MEMORY IMPAIRMENT [None]
